FAERS Safety Report 8433803-7 (Version None)
Quarter: 2012Q2

REPORT INFORMATION
  Report Type: 
  Country: None (occurrence: None)
  Receive Date: 20120613
  Receipt Date: 20120612
  Transmission Date: 20120825
  Serious: Yes (Hospitalization)
  Sender: FDA-Public Use
  Company Number: ES-PFIZER INC-2012100689

PATIENT
  Age: 86 Year
  Sex: Female

DRUGS (5)
  1. TRAZODONE HCL [Interacting]
     Indication: DEMENTIA
     Dosage: 100 MG, 1X/DAY
     Route: 048
     Dates: start: 20080101, end: 20101203
  2. ALDACTONE [Suspect]
     Indication: HYPERTENSION
     Dosage: 100 MG, 1X/DAY
     Route: 048
     Dates: start: 20080101, end: 20101203
  3. FUROSEMIDE [Interacting]
     Indication: HYPERTENSION
     Dosage: 40 MG, 1X/DAY
     Route: 048
     Dates: start: 20080101, end: 20101203
  4. CETIRIZINE [Interacting]
     Dosage: 10 MG, 1X/DAY
     Route: 048
     Dates: start: 20080101, end: 20101203
  5. ZOLPIDEM [Interacting]
     Indication: DEMENTIA
     Dosage: 5 MG, 1X/DAY
     Route: 048
     Dates: start: 20080101, end: 20101203

REACTIONS (2)
  - HEPATIC ENCEPHALOPATHY [None]
  - DRUG INTERACTION [None]
